FAERS Safety Report 16489503 (Version 2)
Quarter: 2019Q3

REPORT INFORMATION
  Report Type: Spontaneous
  Country: CU (occurrence: CU)
  Receive Date: 20190628
  Receipt Date: 20190703
  Transmission Date: 20191004
  Serious: Yes (Other)
  Sender: FDA-Public Use
  Company Number: CU-SA-2019SA171193

PATIENT
  Sex: Male
  Weight: 14.4 kg

DRUGS (1)
  1. ALDURAZYME [Suspect]
     Active Substance: LARONIDASE
     Dosage: UNK, UNK
     Route: 065
     Dates: start: 20160812

REACTIONS (9)
  - Mitral valve incompetence [Unknown]
  - Congestive cardiomyopathy [Unknown]
  - Hepatomegaly [Unknown]
  - Erythema [Recovered/Resolved]
  - Urticaria [Recovered/Resolved]
  - Psychomotor retardation [Recovering/Resolving]
  - Corneal opacity [Unknown]
  - Respiratory tract infection [Unknown]
  - Face oedema [Recovered/Resolved]
